FAERS Safety Report 9248345 (Version 1)
Quarter: 2013Q2

REPORT INFORMATION
  Report Type: Spontaneous
  Country: US (occurrence: None)
  Receive Date: 20130419
  Receipt Date: 20130419
  Transmission Date: 20140414
  Serious: No
  Sender: FDA-Public Use
  Company Number: None

PATIENT
  Age: 8 Year
  Sex: Female

DRUGS (1)
  1. LUPRON DEPOT [Suspect]
     Dosage: ADMINISTER INTRAMUSULARLY ONCE A MONTH 4 WEEKS
     Route: 030
     Dates: start: 20120917

REACTIONS (3)
  - Injection site swelling [None]
  - Injection site pain [None]
  - Injection site extravasation [None]
